FAERS Safety Report 13630875 (Version 1)
Quarter: 2017Q2

REPORT INFORMATION
  Report Type: Spontaneous
  Country: US (occurrence: US)
  Receive Date: 20170531
  Receipt Date: 20170531
  Transmission Date: 20170830
  Serious: No
  Sender: FDA-Public Use
  Company Number: US-ASTELLAS-1335080

PATIENT
  Sex: Male

DRUGS (6)
  1. TEMAZEPAM. [Concomitant]
     Active Substance: TEMAZEPAM
  2. LISINOPRIL. [Concomitant]
     Active Substance: LISINOPRIL
  3. TARCEVA [Suspect]
     Active Substance: ERLOTINIB HYDROCHLORIDE
     Route: 048
     Dates: start: 20131113
  4. TARCEVA [Suspect]
     Active Substance: ERLOTINIB HYDROCHLORIDE
     Indication: LUNG NEOPLASM MALIGNANT
     Route: 048
     Dates: start: 20140122
  5. PRAVASTATIN. [Concomitant]
     Active Substance: PRAVASTATIN
  6. NIFEDIPINE. [Concomitant]
     Active Substance: NIFEDIPINE

REACTIONS (2)
  - Diarrhoea [Unknown]
  - Rash [Unknown]
